FAERS Safety Report 18164238 (Version 2)
Quarter: 2020Q4

REPORT INFORMATION
  Report Type: Spontaneous
  Country: US (occurrence: US)
  Receive Date: 20200818
  Receipt Date: 20201009
  Transmission Date: 20210113
  Serious: Yes (Other)
  Sender: FDA-Public Use
  Company Number: US-GILEAD-2020-0490115

PATIENT
  Sex: Male
  Weight: 61.22 kg

DRUGS (40)
  1. XANAX [Concomitant]
     Active Substance: ALPRAZOLAM
  2. ZIAGEN [Concomitant]
     Active Substance: ABACAVIR SULFATE
  3. GUAIFENESIN. [Concomitant]
     Active Substance: GUAIFENESIN
  4. MULTIVITAMINS [VITAMINS NOS] [Concomitant]
     Active Substance: VITAMINS
  5. PROMETHAZINE [Concomitant]
     Active Substance: PROMETHAZINE HYDROCHLORIDE
  6. TRUVADA [Suspect]
     Active Substance: EMTRICITABINE\TENOFOVIR DISOPROXIL FUMARATE
     Indication: HIV INFECTION
     Dosage: UNK
     Route: 048
     Dates: start: 2004, end: 20111214
  7. ALPRAZOLAM. [Concomitant]
     Active Substance: ALPRAZOLAM
  8. AMLODIPINE BESILATE [Concomitant]
     Active Substance: AMLODIPINE BESYLATE
  9. METRONIDAZOLE. [Concomitant]
     Active Substance: METRONIDAZOLE
  10. VALACYCLOVIR [Concomitant]
     Active Substance: VALACYCLOVIR HYDROCHLORIDE
  11. HYDROCHLOROTHIAZIDE. [Concomitant]
     Active Substance: HYDROCHLOROTHIAZIDE
  12. KLONOPIN [Concomitant]
     Active Substance: CLONAZEPAM
  13. CRIXIVAN [Concomitant]
     Active Substance: INDINAVIR SULFATE
  14. ATORVASTATIN [Concomitant]
     Active Substance: ATORVASTATIN
  15. FINASTERIDE. [Concomitant]
     Active Substance: FINASTERIDE
  16. NORVASC [Concomitant]
     Active Substance: AMLODIPINE BESYLATE
  17. COMBIVIR [Concomitant]
     Active Substance: LAMIVUDINE\ZIDOVUDINE
  18. LIPITOR [Concomitant]
     Active Substance: ATORVASTATIN CALCIUM
  19. NORVIR [Concomitant]
     Active Substance: RITONAVIR
  20. AZITHROMYCIN ANHYDROUS. [Concomitant]
     Active Substance: AZITHROMYCIN ANHYDROUS
  21. CEPHALEXIN [CEFALEXIN] [Concomitant]
     Active Substance: CEPHALEXIN
  22. DRONABINOL. [Concomitant]
     Active Substance: DRONABINOL
  23. FISH OIL [Concomitant]
     Active Substance: FISH OIL
  24. FLONASE ALLERGY RELIEF [Concomitant]
     Active Substance: FLUTICASONE PROPIONATE
  25. BUPROPION. [Concomitant]
     Active Substance: BUPROPION
  26. CIPROFLOXACIN. [Concomitant]
     Active Substance: CIPROFLOXACIN
  27. CLONAZEPAM. [Concomitant]
     Active Substance: CLONAZEPAM
  28. FLOMAX [Concomitant]
     Active Substance: TAMSULOSIN HYDROCHLORIDE
  29. HYDROCODONE [Concomitant]
     Active Substance: HYDROCODONE
  30. SPIRIVA [Concomitant]
     Active Substance: TIOTROPIUM BROMIDE MONOHYDRATE
  31. KALETRA [Concomitant]
     Active Substance: LOPINAVIR\RITONAVIR
  32. TRIUMEQ [Concomitant]
     Active Substance: ABACAVIR SULFATE\DOLUTEGRAVIR SODIUM\LAMIVUDINE
  33. COLCHICINE. [Concomitant]
     Active Substance: COLCHICINE
  34. DOXAZOSIN [Concomitant]
     Active Substance: DOXAZOSIN MESYLATE
  35. TURMERIC [CURCUMA LONGA RHIZOME] [Concomitant]
     Active Substance: HERBALS\TURMERIC
  36. TRAZODONE [Concomitant]
     Active Substance: TRAZODONE HYDROCHLORIDE
  37. ISENTRESS [Concomitant]
     Active Substance: RALTEGRAVIR POTASSIUM
  38. SUSTIVA [Concomitant]
     Active Substance: EFAVIRENZ
  39. VENTOLINE [SALBUTAMOL] [Concomitant]
     Active Substance: ALBUTEROL SULFATE
  40. VITAMIN D [VITAMIN D NOS] [Concomitant]
     Active Substance: VITAMIN D NOS

REACTIONS (6)
  - Emotional distress [Unknown]
  - Depression [Not Recovered/Not Resolved]
  - Anxiety [Not Recovered/Not Resolved]
  - Chronic kidney disease [Not Recovered/Not Resolved]
  - Renal impairment [Unknown]
  - Pain [Unknown]

NARRATIVE: CASE EVENT DATE: 2005
